FAERS Safety Report 20673288 (Version 1)
Quarter: 2022Q2

REPORT INFORMATION
  Report Type: Spontaneous
  Country: NZ (occurrence: NZ)
  Receive Date: 20220405
  Receipt Date: 20220405
  Transmission Date: 20220721
  Serious: Yes (Other)
  Sender: FDA-Public Use
  Company Number: NZ-SANOFI US-2022SA106638

PATIENT

DRUGS (1)
  1. TRIAMCINOLONE ACETONIDE [Suspect]
     Active Substance: TRIAMCINOLONE ACETONIDE
     Indication: Eye infection toxoplasmal
     Dosage: INTRAVITREAL INJECTION
     Route: 031

REACTIONS (2)
  - Cytomegalovirus chorioretinitis [Unknown]
  - Uveitis [Unknown]
